FAERS Safety Report 15312122 (Version 1)
Quarter: 2018Q3

REPORT INFORMATION
  Report Type: Spontaneous
  Country: US (occurrence: US)
  Receive Date: 20180814
  Receipt Date: 20180814
  Transmission Date: 20181010
  Serious: Yes (Hospitalization)
  Sender: FDA-Public Use
  Company Number: None

PATIENT
  Sex: Female

DRUGS (19)
  1. CIPROFLOXACIN. [Concomitant]
     Active Substance: CIPROFLOXACIN
  2. OMEPRAZOLE. [Concomitant]
     Active Substance: OMEPRAZOLE
  3. GENGRAF [Suspect]
     Active Substance: CYCLOSPORINE
     Indication: TRANSPLANT
     Dosage: 50MG 75MG  BID QAM  QPM ORAL
     Route: 048
     Dates: start: 20120306
  4. ACYCLOVIR. [Concomitant]
     Active Substance: ACYCLOVIR
  5. AZATHIOPRINE. [Concomitant]
     Active Substance: AZATHIOPRINE
  6. AZATHIOPRINE. [Concomitant]
     Active Substance: AZATHIOPRINE
  7. CEPHALEXIN. [Concomitant]
     Active Substance: CEPHALEXIN
  8. METOPROL TAR [Concomitant]
  9. FOLIC ACID. [Concomitant]
     Active Substance: FOLIC ACID
  10. ITRACONAZOLE. [Concomitant]
     Active Substance: ITRACONAZOLE
  11. PREDNISONE. [Concomitant]
     Active Substance: PREDNISONE
  12. PROAIR HFA [Concomitant]
     Active Substance: ALBUTEROL SULFATE
  13. SMZ/TMP [Concomitant]
     Active Substance: SULFAMETHOXAZOLE\TRIMETHOPRIM
  14. METHIMAZOLE. [Concomitant]
     Active Substance: METHIMAZOLE
  15. SUMATRIPTAN. [Concomitant]
     Active Substance: SUMATRIPTAN
  16. INTRAROSA [Concomitant]
     Active Substance: PRASTERONE
  17. ALPRAZOLAM. [Concomitant]
     Active Substance: ALPRAZOLAM
  18. AZITHROMYCIN ANHYDROUS. [Concomitant]
     Active Substance: AZITHROMYCIN ANHYDROUS
  19. SEREVENT DISKUS [Concomitant]
     Active Substance: SALMETEROL XINAFOATE

REACTIONS (2)
  - Limb injury [None]
  - Laceration [None]
